FAERS Safety Report 6012193-3 (Version None)
Quarter: 2008Q4

REPORT INFORMATION
  Report Type: 
  Country: None (occurrence: None)
  Receive Date: 20081218
  Receipt Date: 20081208
  Transmission Date: 20090506
  Serious: Yes (Hospitalization)
  Sender: FDA-Public Use
  Company Number: PL-PFIZER INC-2008100976

PATIENT

DRUGS (4)
  1. SILDENAFIL CITRATE [Suspect]
     Indication: PULMONARY HYPERTENSION
     Dosage: 20 MG, 3X/DAY
     Route: 048
     Dates: start: 20061127
  2. VERAPAMIL [Concomitant]
     Dosage: UNK
     Route: 048
     Dates: start: 20081124, end: 20081127
  3. ILOPROST TROMETAMOL [Concomitant]
     Dosage: UNK
     Route: 055
     Dates: start: 20081128
  4. DILTIAZEM [Concomitant]
     Dosage: UNK
     Route: 048
     Dates: start: 20081127

REACTIONS (1)
  - SUPRAVENTRICULAR TACHYCARDIA [None]
